FAERS Safety Report 4423471-3 (Version None)
Quarter: 2004Q3

REPORT INFORMATION
  Report Type: 
  Country: None (occurrence: None)
  Receive Date: 20040806
  Receipt Date: 20040726
  Transmission Date: 20050211
  Serious: Yes (Disabling)
  Sender: FDA-Public Use
  Company Number: 2004GB01813

PATIENT
  Age: 79 Year
  Sex: Female
  Weight: 50 kg

DRUGS (1)
  1. PLENDIL [Suspect]
     Indication: BLOOD PRESSURE
     Dosage: 2.5 MG DAILY PO
     Route: 048
     Dates: start: 20011101, end: 20020301

REACTIONS (1)
  - LICHEN PLANUS [None]
